FAERS Safety Report 6645504-6 (Version None)
Quarter: 2010Q1

REPORT INFORMATION
  Report Type: 
  Country: None (occurrence: None)
  Receive Date: 20100319
  Receipt Date: 20100319
  Transmission Date: 20100710
  Serious: Yes (Life-Threatening)
  Sender: FDA-Public Use
  Company Number: None

PATIENT
  Sex: Female
  Weight: 63.5036 kg

DRUGS (1)
  1. NITROSTAT [Suspect]
     Indication: ANGINA PECTORIS
     Dosage: 1 TABLET EVERY 5 MIN SL
     Route: 060
     Dates: start: 20100313, end: 20100313

REACTIONS (2)
  - CHEST PAIN [None]
  - DRUG INEFFECTIVE [None]
